FAERS Safety Report 16872033 (Version 2)
Quarter: 2019Q4

REPORT INFORMATION
  Report Type: Spontaneous
  Country: MX (occurrence: MX)
  Receive Date: 20191001
  Receipt Date: 20191002
  Transmission Date: 20200122
  Serious: No
  Sender: FDA-Public Use
  Company Number: MX-BEH-2019107449

PATIENT
  Age: 32 Year
  Sex: Female
  Weight: 70 kg

DRUGS (1)
  1. HIZENTRA [Suspect]
     Active Substance: HUMAN IMMUNOGLOBULIN G
     Indication: INFECTION
     Dosage: 2 GRAM/10ML, TOT
     Route: 058
     Dates: start: 20190924, end: 20190924

REACTIONS (4)
  - No adverse event [Unknown]
  - Infusion site pain [Recovered/Resolved]
  - Product use in unapproved indication [Unknown]
  - Infusion site warmth [Recovered/Resolved]

NARRATIVE: CASE EVENT DATE: 20190924
